FAERS Safety Report 17588839 (Version 1)
Quarter: 2020Q1

REPORT INFORMATION
  Report Type: Spontaneous
  Country: IN (occurrence: IN)
  Receive Date: 20200327
  Receipt Date: 20200327
  Transmission Date: 20200409
  Serious: Yes (Other)
  Sender: FDA-Public Use
  Company Number: IN-ROCHE-2570825

PATIENT
  Age: 31 Year
  Sex: Female

DRUGS (2)
  1. HERCEPTIN [Suspect]
     Active Substance: TRASTUZUMAB
     Indication: BREAST CANCER METASTATIC
     Route: 065
     Dates: end: 20190201
  2. PACLITAXEL. [Suspect]
     Active Substance: PACLITAXEL
     Indication: PRODUCT USED FOR UNKNOWN INDICATION
     Route: 065
     Dates: start: 201902, end: 20190201

REACTIONS (7)
  - Intraductal proliferative breast lesion [Unknown]
  - Nodule [Unknown]
  - Metastases to central nervous system [Unknown]
  - Ejection fraction decreased [Unknown]
  - Cardiotoxicity [Unknown]
  - Head discomfort [Unknown]
  - Deafness [Unknown]
